FAERS Safety Report 24578424 (Version 2)
Quarter: 2024Q4

REPORT INFORMATION
  Report Type: Spontaneous
  Country: JP (occurrence: JP)
  Receive Date: 20241105
  Receipt Date: 20241113
  Transmission Date: 20250115
  Serious: Yes (Hospitalization)
  Sender: NOVARTIS
  Company Number: JP-002147023-NVSJ2024JP012806

PATIENT
  Age: 72 Year
  Sex: Female

DRUGS (8)
  1. LUTATHERA [Suspect]
     Active Substance: LUTETIUM OXODOTREOTIDE LU-177
     Indication: Small intestine neuroendocrine tumour
     Dosage: 7.4 GBQ, ONCE EVERY 8 WEEKS
     Route: 041
     Dates: start: 20240215
  2. LUTATHERA [Suspect]
     Active Substance: LUTETIUM OXODOTREOTIDE LU-177
     Dosage: 7.4 GBQ, ONCE EVERY 8 WEEKS
     Route: 041
  3. LUTATHERA [Suspect]
     Active Substance: LUTETIUM OXODOTREOTIDE LU-177
     Dosage: 7.4 GBQ, ONCE EVERY 8 WEEKS
     Route: 041
  4. LUTATHERA [Suspect]
     Active Substance: LUTETIUM OXODOTREOTIDE LU-177
     Dosage: 7.4 GBQ, ONCE EVERY 8 WEEKS
     Route: 041
     Dates: start: 20240801, end: 20240801
  5. ARGININE\LYSINE [Concomitant]
     Active Substance: ARGININE\LYSINE
     Indication: Renal disorder prophylaxis
     Dosage: 1000 MG, ONCE EVERY 8 WEEKS
     Route: 041
     Dates: start: 20240215
  6. ARGININE\LYSINE [Concomitant]
     Active Substance: ARGININE\LYSINE
     Dosage: 1000 MG, ONCE EVERY 8 WEEKS
     Route: 041
  7. ARGININE\LYSINE [Concomitant]
     Active Substance: ARGININE\LYSINE
     Dosage: 1000 MG, ONCE EVERY 8 WEEKS
     Route: 041
  8. ARGININE\LYSINE [Concomitant]
     Active Substance: ARGININE\LYSINE
     Dosage: 1000 MG, ONCE EVERY 8 WEEKS
     Route: 041
     Dates: start: 20240801, end: 20240801

REACTIONS (1)
  - Liver abscess [Recovering/Resolving]

NARRATIVE: CASE EVENT DATE: 20241026
